FAERS Safety Report 5748397-4 (Version None)
Quarter: 2008Q2

REPORT INFORMATION
  Report Type: 
  Country: None (occurrence: None)
  Receive Date: 20080520
  Receipt Date: 20080502
  Transmission Date: 20081010
  Serious: Yes (Hospitalization)
  Sender: FDA-Public Use
  Company Number: 002#1#2008-00361

PATIENT
  Age: 73 Year
  Sex: Male

DRUGS (7)
  1. NEUPRO [Suspect]
     Indication: PARKINSON'S DISEASE
     Dosage: 8MG/ 24H, 1 IN 1 D, TRANSDERMAL; 12 MG/24H, 1 IN 1 D, TRANSDERMAL
     Route: 062
     Dates: start: 20071007
  2. STALEVO 100 [Concomitant]
  3. TOPROL-XL [Concomitant]
  4. LOTENSIN [Concomitant]
  5. IMDUR [Concomitant]
  6. HYDROCHLOROTHIAZIDE [Concomitant]
  7. ASPIRIN [Concomitant]

REACTIONS (2)
  - MOBILITY DECREASED [None]
  - TRANSIENT ISCHAEMIC ATTACK [None]
